FAERS Safety Report 8618585-8 (Version None)
Quarter: 2012Q3

REPORT INFORMATION
  Report Type: 
  Country: None (occurrence: None)
  Receive Date: 20120824
  Receipt Date: 20120822
  Transmission Date: 20120928
  Serious: Yes (Other)
  Sender: FDA-Public Use
  Company Number: US-PFIZER INC-2012206670

PATIENT
  Age: 63 Year
  Sex: Female
  Weight: 54.422 kg

DRUGS (3)
  1. CLONAZEPAM [Concomitant]
     Indication: ANXIETY
     Dosage: UNK, AS NEEDED
  2. SERTRALINE HYDROCHLORIDE [Suspect]
     Indication: POST-TRAUMATIC STRESS DISORDER
     Dosage: 200 MG, DAILY
     Dates: start: 20110901, end: 20110901
  3. SERTRALINE HYDROCHLORIDE [Suspect]
     Indication: DEPRESSION

REACTIONS (5)
  - DRUG INEFFECTIVE [None]
  - URINE ODOUR ABNORMAL [None]
  - DEPRESSION [None]
  - SKIN ODOUR ABNORMAL [None]
  - HYPERSENSITIVITY [None]
